FAERS Safety Report 6341632-3 (Version None)
Quarter: 2009Q3

REPORT INFORMATION
  Report Type: 
  Country: None (occurrence: None)
  Receive Date: 20090904
  Receipt Date: 20090825
  Transmission Date: 20100115
  Serious: Yes (Hospitalization)
  Sender: FDA-Public Use
  Company Number: RO-AMGEN-US362563

PATIENT
  Sex: Female
  Weight: 47 kg

DRUGS (3)
  1. ENBREL [Suspect]
     Indication: JUVENILE ARTHRITIS
     Dosage: 25 MG 2X/WEEK (0.4 MG/KG=19 MG)
     Route: 058
     Dates: start: 20040801, end: 20090816
  2. METHOTREXATE [Suspect]
     Indication: JUVENILE ARTHRITIS
     Dates: start: 20040801
  3. FOLIC ACID [Concomitant]

REACTIONS (1)
  - PULMONARY TUBERCULOSIS [None]
